FAERS Safety Report 9701312 (Version 1)
Quarter: 2013Q4

REPORT INFORMATION
  Report Type: Spontaneous
  Country: US (occurrence: US)
  Receive Date: 20131121
  Receipt Date: 20131121
  Transmission Date: 20140711
  Serious: No
  Sender: FDA-Public Use
  Company Number: US-GILEAD-2008-0016408

PATIENT
  Age: 69 Year
  Sex: Female

DRUGS (9)
  1. LETAIRIS [Suspect]
     Indication: PULMONARY ARTERIAL HYPERTENSION
     Route: 048
     Dates: start: 20070412
  2. NORVASC [Concomitant]
     Route: 048
     Dates: start: 200711
  3. QVAR [Concomitant]
     Route: 048
     Dates: start: 200711
  4. SEREVENT [Concomitant]
     Dates: start: 200711
  5. LASIX [Concomitant]
     Route: 048
     Dates: start: 200711
  6. ZEGERID [Concomitant]
     Route: 048
     Dates: start: 200803
  7. ZEGERID [Concomitant]
     Route: 048
  8. PREVACID [Concomitant]
     Route: 048
     Dates: start: 20080509
  9. LEVOTHYROXINE [Concomitant]
     Route: 048
     Dates: start: 200711

REACTIONS (1)
  - Pain in extremity [Not Recovered/Not Resolved]
